FAERS Safety Report 18451111 (Version 1)
Quarter: 2020Q4

REPORT INFORMATION
  Report Type: Spontaneous
  Country: US (occurrence: US)
  Receive Date: 20201102
  Receipt Date: 20201102
  Transmission Date: 20210114
  Serious: Yes (Life-Threatening, Hospitalization, Other)
  Sender: FDA-Public Use
  Company Number: US-CIPLA LTD.-2020US07700

PATIENT

DRUGS (1)
  1. LAMOTRIGINE. [Suspect]
     Active Substance: LAMOTRIGINE
     Dosage: UNK
     Route: 065

REACTIONS (6)
  - Toxicity to various agents [Recovering/Resolving]
  - Brain oedema [Recovering/Resolving]
  - Encephalopathy [Recovering/Resolving]
  - Cytotoxic oedema [Recovering/Resolving]
  - Intracranial pressure increased [Recovering/Resolving]
  - Intentional overdose [Recovering/Resolving]
